FAERS Safety Report 16650666 (Version 1)
Quarter: 2019Q3

REPORT INFORMATION
  Report Type: Spontaneous
  Country: US (occurrence: US)
  Receive Date: 20190731
  Receipt Date: 20190731
  Transmission Date: 20191004
  Serious: No
  Sender: FDA-Public Use
  Company Number: US-BION-007987

PATIENT
  Sex: Male

DRUGS (7)
  1. LOSARTAN. [Concomitant]
     Active Substance: LOSARTAN
     Indication: BLOOD PRESSURE MEASUREMENT
     Dosage: 100 MG TABLET ONCE A DAY
  2. DOFETILIDE BIONPHARMA [Suspect]
     Active Substance: DOFETILIDE
     Indication: HEART RATE
     Dosage: 8 AM IN THE MORNING AND 8 IN THE PM?STRENGTH: 500 MCG
     Dates: start: 20190403
  3. METOPROLOL. [Concomitant]
     Active Substance: METOPROLOL
     Indication: BLOOD PRESSURE MEASUREMENT
     Dosage: 25 MG CAPSULE ONCE A DAY IN THE EVENING
  4. AVODART [Concomitant]
     Active Substance: DUTASTERIDE
     Indication: PROSTATITIS
     Dosage: 0.5 MG CAPSULE ONCE A DAY
  5. AMLODIPINE [Concomitant]
     Active Substance: AMLODIPINE BESYLATE
     Indication: BLOOD PRESSURE MEASUREMENT
     Dosage: 10 MG ONE TABLET DAILY
  6. ELIQUIS [Concomitant]
     Active Substance: APIXABAN
     Indication: THROMBOSIS
     Dosage: 5 MG TABLET TWICE DAILY; ONCE IN THE MORNING AND ONCE IN THE PM
  7. CRESTOR [Concomitant]
     Active Substance: ROSUVASTATIN CALCIUM
     Dosage: 10 MG TABLET ONCE A DAY

REACTIONS (2)
  - Product label issue [Unknown]
  - Wrong schedule [Not Recovered/Not Resolved]

NARRATIVE: CASE EVENT DATE: 20190423
